FAERS Safety Report 13706492 (Version 2)
Quarter: 2017Q3

REPORT INFORMATION
  Report Type: Report from Study
  Country: US (occurrence: US)
  Receive Date: 20170630
  Receipt Date: 20170810
  Transmission Date: 20171127
  Serious: Yes (Other)
  Sender: FDA-Public Use
  Company Number: US-AMGEN-USASL2017096377

PATIENT
  Age: 70 Year
  Sex: Female

DRUGS (2)
  1. REPATHA [Suspect]
     Active Substance: EVOLOCUMAB
     Indication: HYPERCHOLESTEROLAEMIA
     Dosage: 140 MG, Q2WK
     Route: 065
     Dates: start: 201705, end: 20170731
  2. REPATHA [Suspect]
     Active Substance: EVOLOCUMAB
     Indication: TYPE V HYPERLIPIDAEMIA

REACTIONS (5)
  - Swollen tongue [Unknown]
  - Dysarthria [Unknown]
  - Back pain [Not Recovered/Not Resolved]
  - Tinnitus [Unknown]
  - Vision blurred [Unknown]

NARRATIVE: CASE EVENT DATE: 2017
